FAERS Safety Report 4762540-5 (Version None)
Quarter: 2005Q3

REPORT INFORMATION
  Report Type: 
  Country: None (occurrence: None)
  Receive Date: 20050902
  Receipt Date: 20050707
  Transmission Date: 20060218
  Serious: Yes (Other)
  Sender: FDA-Public Use
  Company Number: 2005S1000506

PATIENT
  Age: 52 Year
  Sex: Male

DRUGS (6)
  1. FENTANYL [Suspect]
     Indication: BACK PAIN
     Dosage: SEE IMAGE
     Dates: start: 20050212, end: 20050212
  2. FENTANYL [Suspect]
     Indication: PAIN
     Dosage: SEE IMAGE
     Dates: start: 20050212, end: 20050212
  3. FENTANYL [Suspect]
     Indication: BACK PAIN
     Dosage: SEE IMAGE
     Dates: start: 20050301
  4. FENTANYL [Suspect]
     Indication: PAIN
     Dosage: SEE IMAGE
     Dates: start: 20050301
  5. PAROXETINE [Concomitant]
  6. ESOMEPRAZOLE MAGNESIUM [Concomitant]

REACTIONS (11)
  - AMNESIA [None]
  - ANXIETY [None]
  - CHEST PAIN [None]
  - DELUSION [None]
  - DISORIENTATION [None]
  - DRUG EFFECT INCREASED [None]
  - DYSPNOEA [None]
  - LOSS OF CONSCIOUSNESS [None]
  - NAUSEA [None]
  - SOMNOLENCE [None]
  - SPEECH DISORDER [None]
